FAERS Safety Report 14078046 (Version 1)
Quarter: 2017Q4

REPORT INFORMATION
  Report Type: Spontaneous
  Country: US (occurrence: None)
  Receive Date: 20171011
  Receipt Date: 20171011
  Transmission Date: 20180321
  Serious: No
  Sender: FDA-Public Use
  Company Number: None

PATIENT
  Age: 52 Year
  Sex: Female

DRUGS (1)
  1. IBRANCE [Suspect]
     Active Substance: PALBOCICLIB
     Indication: BREAST CANCER
     Dosage: 100MG ONCE DAILY FOR 21 DAYS THEN 7 DAYS OFF BY MOUTH
     Route: 048
     Dates: start: 20170918, end: 20171011

REACTIONS (2)
  - Toxicity to various agents [None]
  - Therapy change [None]

NARRATIVE: CASE EVENT DATE: 20171011
